FAERS Safety Report 15652425 (Version 1)
Quarter: 2018Q4

REPORT INFORMATION
  Report Type: Spontaneous
  Country: US (occurrence: US)
  Receive Date: 20181123
  Receipt Date: 20181123
  Transmission Date: 20190205
  Serious: Yes (Congenital Anomaly)
  Sender: FDA-Public Use
  Company Number: US-FOUNDATIONCONSUMERHC-2018-US-014912

PATIENT
  Sex: Female

DRUGS (1)
  1. PLAN B ONE-STEP [Suspect]
     Active Substance: LEVONORGESTREL
     Indication: POST COITAL CONTRACEPTION
     Dosage: 1.5 MG ON TWO SEPERATE DAYS
     Route: 048
     Dates: start: 20180720, end: 20180810

REACTIONS (3)
  - Drug ineffective [Unknown]
  - Pregnancy after post coital contraception [Unknown]
  - Foetal cardiac disorder [Unknown]

NARRATIVE: CASE EVENT DATE: 20180720
